FAERS Safety Report 9236491 (Version 1)
Quarter: 2013Q2

REPORT INFORMATION
  Report Type: Spontaneous
  Country: US (occurrence: US)
  Receive Date: 20130417
  Receipt Date: 20130417
  Transmission Date: 20140414
  Serious: No
  Sender: FDA-Public Use
  Company Number: US-ASTRAZENECA-2013SE21142

PATIENT
  Sex: Female

DRUGS (1)
  1. VIMOVO [Suspect]
     Indication: ACCIDENT AT WORK
     Route: 048

REACTIONS (3)
  - Blister [Unknown]
  - Pruritus [Unknown]
  - Intentional drug misuse [Unknown]
